FAERS Safety Report 8219858-3 (Version None)
Quarter: 2012Q1

REPORT INFORMATION
  Report Type: 
  Country: None (occurrence: None)
  Receive Date: 20120319
  Receipt Date: 20120309
  Transmission Date: 20120608
  Serious: Yes (Other)
  Sender: FDA-Public Use
  Company Number: US-ASTRAZENECA-2011SE46653

PATIENT
  Age: 77 Year
  Sex: Female

DRUGS (3)
  1. PLAVIX [Concomitant]
  2. PREVACID [Concomitant]
  3. NEXIUM [Suspect]
     Route: 048

REACTIONS (7)
  - CARDIAC MURMUR [None]
  - GASTRIC DISORDER [None]
  - NEPHROLITHIASIS [None]
  - RENAL FAILURE [None]
  - MYOCARDIAL INFARCTION [None]
  - MALAISE [None]
  - DRUG DOSE OMISSION [None]
